FAERS Safety Report 16250072 (Version 1)
Quarter: 2019Q2

REPORT INFORMATION
  Report Type: Report from Study
  Country: None (occurrence: US)
  Receive Date: 20190429
  Receipt Date: 20190429
  Transmission Date: 20190711
  Serious: Yes (Other)
  Sender: FDA-Public Use
  Company Number: US-ABBVIE-19S-163-2755141-00

PATIENT
  Sex: Female

DRUGS (1)
  1. CREON [Suspect]
     Active Substance: PANCRELIPASE AMYLASE\PANCRELIPASE LIPASE\PANCRELIPASE PROTEASE
     Indication: PRODUCT USED FOR UNKNOWN INDICATION
     Route: 048

REACTIONS (10)
  - Hypertension [Unknown]
  - Breast pain [Unknown]
  - Hyperlipidaemia [Unknown]
  - Hepatitis [Unknown]
  - Osteoporosis [Unknown]
  - Osteoarthritis [Unknown]
  - Depression [Unknown]
  - Pancreatic carcinoma [Unknown]
  - Type 1 diabetes mellitus [Unknown]
  - Primary hypothyroidism [Unknown]
